FAERS Safety Report 6794571-8 (Version None)
Quarter: 2010Q2

REPORT INFORMATION
  Report Type: 
  Country: None (occurrence: None)
  Receive Date: 20100625
  Receipt Date: 20100605
  Transmission Date: 20101027
  Serious: Yes (Life-Threatening, Hospitalization)
  Sender: FDA-Public Use
  Company Number: GB-BAYER-200911233BNE

PATIENT
  Age: 62 Year
  Sex: Male

DRUGS (23)
  1. SORAFENIB [Suspect]
     Indication: DRUG USE FOR UNKNOWN INDICATION
     Dosage: CYCLE 4
     Route: 048
     Dates: start: 20090326
  2. GEMCITABINE HCL [Suspect]
     Indication: DRUG USE FOR UNKNOWN INDICATION
     Dosage: CYCLE 2 - 1000MG/M2 - DOSE GIVEN = 0
     Dates: start: 20090211, end: 20090211
  3. GEMCITABINE HCL [Suspect]
     Dosage: CYCLE 1 - 1250MG/M2
     Dates: start: 20090106, end: 20090106
  4. GEMCITABINE HCL [Suspect]
     Dosage: CYCLE 4 1000MG/M2
     Dates: start: 20090402, end: 20090402
  5. GEMCITABINE HCL [Suspect]
     Dosage: CYCLE 4 1000MG/M2
     Dates: start: 20090326, end: 20090326
  6. GEMCITABINE HCL [Suspect]
     Dosage: CYCLE 2 1000MG/M2 - DOSE REDUCED
     Dates: start: 20090204, end: 20090204
  7. GEMCITABINE HCL [Suspect]
     Dosage: CYCLE 1 - 1250MG/M2
     Dates: start: 20081230, end: 20081230
  8. GEMCITABINE HCL [Suspect]
     Dosage: CYCLE 3 - 1000MG/M2 - DOSE GIVEN = 0
     Dates: start: 20090304, end: 20090304
  9. GEMCITABINE HCL [Suspect]
     Dosage: CYCLE 3 1000MG/M2 - DOSE REDUCED
     Dates: start: 20090225, end: 20090225
  10. CISPLATIN [Suspect]
     Indication: DRUG USE FOR UNKNOWN INDICATION
     Dosage: CYCLE 4 - 60MG/M2
     Dates: start: 20090326, end: 20090326
  11. CISPLATIN [Suspect]
     Dosage: CYCLE 1 - 75MG/M2
     Dates: start: 20081230, end: 20081230
  12. CISPLATIN [Suspect]
     Dosage: CYCLE 3 - 60MG/M2 - DOSE REDUCED
     Dates: start: 20090225, end: 20090225
  13. CISPLATIN [Suspect]
     Dosage: CYCLE 2 60MG/M2 - DOSE REDUCED
     Dates: start: 20090204, end: 20090204
  14. SOLPADOL [Concomitant]
     Indication: PAIN
     Dosage: 3-6 CAPS
     Route: 048
     Dates: start: 20081201
  15. IBUPROFEN [Concomitant]
     Indication: PAIN
     Route: 048
     Dates: start: 20090101
  16. SENNA [Concomitant]
     Indication: CONSTIPATION
     Dosage: 2
     Route: 048
     Dates: start: 20090101
  17. CIPROFLOXACIN [Concomitant]
     Indication: PROPHYLAXIS
     Route: 048
     Dates: start: 20090407
  18. CIPROFLOXACIN [Concomitant]
     Route: 048
     Dates: start: 20090304, end: 20090310
  19. CIPROFLOXACIN [Concomitant]
     Route: 048
     Dates: start: 20090112, end: 20090119
  20. CIPROFLOXACIN [Concomitant]
     Route: 048
     Dates: start: 20090211, end: 20090217
  21. CODEINE PHOSPHATE [Concomitant]
     Indication: PAIN
     Route: 048
     Dates: start: 20090202
  22. DOTHIEPIN HYDROCHLORIDE [Concomitant]
     Indication: MOOD ALTERED
     Route: 048
     Dates: start: 20090202
  23. FELODIPINE [Concomitant]
     Indication: HYPERTENSION
     Dates: start: 20090304

REACTIONS (3)
  - LEUKOPENIA [None]
  - NEUTROPENIA [None]
  - PLATELET COUNT DECREASED [None]
